FAERS Safety Report 11212713 (Version 1)
Quarter: 2015Q2

REPORT INFORMATION
  Report Type: Spontaneous
  Country: FR (occurrence: FR)
  Receive Date: 20150623
  Receipt Date: 20150623
  Transmission Date: 20150821
  Serious: Yes (Hospitalization, Disabling)
  Sender: FDA-Public Use
  Company Number: FR-SA-2014SA074381

PATIENT
  Age: 60 Year
  Sex: Female

DRUGS (18)
  1. METFORMIN [Concomitant]
     Active Substance: METFORMIN HYDROCHLORIDE
     Route: 048
     Dates: start: 2013
  2. TRAMADOL [Concomitant]
     Active Substance: TRAMADOL
     Dosage: FOR SEVERAL YEARS
  3. METHOTREXATE [Concomitant]
     Active Substance: METHOTREXATE
     Indication: RHEUMATOID ARTHRITIS
  4. METHOTREXATE [Concomitant]
     Active Substance: METHOTREXATE
     Indication: RHEUMATOID ARTHRITIS
     Dates: start: 2006
  5. CORTANCYL [Concomitant]
     Active Substance: PREDNISONE
     Indication: RHEUMATOID ARTHRITIS
     Dates: start: 2006
  6. ZOLPIDEM [Concomitant]
     Active Substance: ZOLPIDEM\ZOLPIDEM TARTRATE
     Route: 065
     Dates: start: 201312
  7. CALCIDOSE [Concomitant]
     Active Substance: CALCIUM CARBONATE
     Dates: start: 1986
  8. COUMADINE [Concomitant]
     Active Substance: WARFARIN SODIUM
     Route: 048
     Dates: start: 201312
  9. SPIRONOLACTONE. [Concomitant]
     Active Substance: SPIRONOLACTONE
     Route: 048
     Dates: start: 1986
  10. OMEPRAZOLE. [Concomitant]
     Active Substance: OMEPRAZOLE
     Route: 048
     Dates: start: 1986
  11. KARDEGIC [Concomitant]
     Active Substance: ASPIRIN LYSINE
     Route: 048
     Dates: start: 201312
  12. TENORDATE [Concomitant]
     Active Substance: ATENOLOL\NIFEDIPINE
     Route: 065
     Dates: start: 201102
  13. PARACETAMOL [Concomitant]
     Active Substance: ACETAMINOPHEN
     Dosage: FOR SEVERAL YEARS
     Route: 065
  14. CORTANCYL [Concomitant]
     Active Substance: PREDNISONE
     Indication: RHEUMATOID ARTHRITIS
     Dates: start: 1986
  15. ARAVA [Suspect]
     Active Substance: LEFLUNOMIDE
     Indication: RHEUMATOID ARTHRITIS
     Route: 048
     Dates: start: 201008, end: 20131128
  16. PREDNISONE. [Concomitant]
     Active Substance: PREDNISONE
     Dates: start: 1986
  17. ATORVASTATIN [Concomitant]
     Active Substance: ATORVASTATIN
     Route: 048
     Dates: start: 2010
  18. LEVOTHYROX [Concomitant]
     Active Substance: LEVOTHYROXINE
     Route: 065
     Dates: start: 1986

REACTIONS (2)
  - Dyspnoea [Not Recovered/Not Resolved]
  - Pulmonary arterial hypertension [Not Recovered/Not Resolved]

NARRATIVE: CASE EVENT DATE: 20131209
